FAERS Safety Report 8454830 (Version 4)
Quarter: 2013Q1

REPORT INFORMATION
  Report Type: Spontaneous
  Country: US (occurrence: US)
  Receive Date: 20120312
  Receipt Date: 20130227
  Transmission Date: 20140127
  Serious: Yes (Hospitalization)
  Sender: FDA-Public Use
  Company Number: CHPA2008US24338

PATIENT
  Age: 58 Year
  Sex: Female
  Weight: 63.49 kg

DRUGS (6)
  1. EXCEDRIN EXTRA STRENGTH [Suspect]
     Indication: ARTHRALGIA
     Dosage: 2 DF, Q3H
     Route: 048
     Dates: start: 200811, end: 200811
  2. EXCEDRIN EXTRA STRENGTH [Suspect]
     Indication: BACK PAIN
     Dosage: 2 DF, Q3H
     Route: 048
     Dates: end: 20120117
  3. OXYCODONE [Suspect]
     Dosage: UNK
     Dates: start: 2011, end: 2011
  4. OXYCONTIN [Suspect]
     Dosage: UNK
     Dates: start: 2011, end: 2011
  5. PERCOCET [Suspect]
     Dosage: UNK
     Dates: start: 2011, end: 2011
  6. VICODIN [Suspect]
     Dosage: UNK
     Dates: start: 2011, end: 2011

REACTIONS (8)
  - Coronary artery occlusion [Recovered/Resolved]
  - Blood cholesterol increased [Unknown]
  - Dyspepsia [Recovered/Resolved]
  - Constipation [Not Recovered/Not Resolved]
  - Nausea [Not Recovered/Not Resolved]
  - Incorrect drug administration duration [Unknown]
  - Overdose [Unknown]
  - Inappropriate schedule of drug administration [Unknown]
